FAERS Safety Report 8327103-3 (Version None)
Quarter: 2012Q2

REPORT INFORMATION
  Report Type: 
  Country: None (occurrence: None)
  Receive Date: 20120501
  Receipt Date: 20120426
  Transmission Date: 20120825
  Serious: Yes (Other)
  Sender: FDA-Public Use
  Company Number: GB-ABBOTT-12P-167-0908833-00

PATIENT
  Sex: Female

DRUGS (2)
  1. HUMIRA [Suspect]
  2. HUMIRA [Suspect]
     Indication: ANKYLOSING SPONDYLITIS
     Route: 058

REACTIONS (5)
  - ARTHROPATHY [None]
  - UTERINE CERVICAL EROSION [None]
  - GRANULOMA [None]
  - COITAL BLEEDING [None]
  - CERVIX INFLAMMATION [None]
